FAERS Safety Report 7675524-4 (Version None)
Quarter: 2011Q3

REPORT INFORMATION
  Report Type: 
  Country: None (occurrence: None)
  Receive Date: 20110810
  Receipt Date: 20110805
  Transmission Date: 20111222
  Serious: Yes (Other)
  Sender: FDA-Public Use
  Company Number: US-BAYER-2011-070014

PATIENT
  Age: 40 Year
  Sex: Female

DRUGS (6)
  1. YAZ [Suspect]
     Dosage: UNK
     Dates: start: 20031001, end: 20061001
  2. DROSPIRENONE AND ETHINYL ESTRADIOL [Suspect]
     Dosage: UNK
     Dates: start: 20031001, end: 20061001
  3. DROSPIRENONE AND ETHINYL ESTRADIOL [Suspect]
     Dosage: UNK
     Dates: start: 20071101, end: 20090401
  4. YASMIN [Suspect]
     Dosage: UNK
     Dates: start: 20031001, end: 20061001
  5. YAZ [Suspect]
     Dosage: UNK
     Dates: start: 20071101, end: 20090401
  6. YASMIN [Suspect]
     Dosage: UNK
     Dates: start: 20071101, end: 20090401

REACTIONS (6)
  - PULMONARY EMBOLISM [None]
  - EMOTIONAL DISTRESS [None]
  - INJURY [None]
  - ANXIETY [None]
  - DEEP VEIN THROMBOSIS [None]
  - PAIN [None]
